FAERS Safety Report 9727213 (Version 2)
Quarter: 2014Q2

REPORT INFORMATION
  Report Type: Spontaneous
  Country: FR (occurrence: FR)
  Receive Date: 20131203
  Receipt Date: 20140502
  Transmission Date: 20141212
  Serious: Yes (Other)
  Sender: FDA-Public Use
  Company Number: FR-UCBSA-104091

PATIENT
  Age: 67 Year
  Sex: Male

DRUGS (5)
  1. VIMPAT [Suspect]
     Indication: PETIT MAL EPILEPSY
     Route: 048
     Dates: start: 2012
  2. KEPPRA [Suspect]
     Indication: PETIT MAL EPILEPSY
     Route: 048
     Dates: start: 2011
  3. KEPPRA [Suspect]
     Indication: PETIT MAL EPILEPSY
     Dosage: PROGRESSIVE INCREASED DOSE
     Route: 048
  4. KEPPRA [Suspect]
     Indication: PETIT MAL EPILEPSY
     Route: 048
     Dates: start: 2013
  5. PERMIXON [Concomitant]
     Indication: BENIGN PROSTATIC HYPERPLASIA
     Route: 048

REACTIONS (3)
  - Ocular hypertension [Recovered/Resolved]
  - Irritability [Not Recovered/Not Resolved]
  - Disturbance in attention [Not Recovered/Not Resolved]
